FAERS Safety Report 19507341 (Version 1)
Quarter: 2021Q3

REPORT INFORMATION
  Report Type: Spontaneous
  Country: DE (occurrence: DE)
  Receive Date: 20210708
  Receipt Date: 20210708
  Transmission Date: 20211014
  Serious: Yes (Life-Threatening, Hospitalization)
  Sender: FDA-Public Use
  Company Number: DE-TEVA-2021-DE-1929831

PATIENT
  Age: 86 Year
  Sex: Female
  Weight: 64 kg

DRUGS (13)
  1. HYDROCHLOROTHIAZID/METOPROLOL [Interacting]
     Active Substance: HYDROCHLOROTHIAZIDE\METOPROLOL
     Dosage: 1 DOSAGE FORMS DAILY; 12.5 | 95 MG, 1?0?0?0,
     Route: 048
  2. METOCLOPRAMID [Concomitant]
     Active Substance: METOCLOPRAMIDE
     Dosage: 10 MG, AS NEEDED,
     Route: 048
  3. BRIMONIDINE [Concomitant]
     Active Substance: BRIMONIDINE TARTRATE
     Dosage: 2 MILLIGRAM/MILLILITERS DAILY;   1?0?0?0, DROPS
     Route: 047
  4. ACETYLSALICYLSAURE [Concomitant]
     Active Substance: ASPIRIN
     Dosage: 100 MILLIGRAM DAILY;   0?1?0?0,
     Route: 048
  5. METAMIZOL [Concomitant]
     Active Substance: METAMIZOLE SODIUM
     Dosage: 500 MG / ML, NEED, DROPS
     Route: 048
  6. DULOXETIN [Suspect]
     Active Substance: DULOXETINE
     Dosage: 30 MILLIGRAM DAILY;   1?0?0?0,
     Route: 048
  7. AMLODIPIN/OLMESARTAN [Concomitant]
     Active Substance: AMLODIPINE\OLMESARTAN
     Dosage: 1 DOSAGE FORMS DAILY; 5|20 MG, 1?0?0?0,
     Route: 048
  8. ATORVASTATIN [Concomitant]
     Active Substance: ATORVASTATIN
     Dosage: 80 MILLIGRAM DAILY;   0?0?1?0,
     Route: 048
  9. TORASEMID [Interacting]
     Active Substance: TORSEMIDE
     Dosage: 10 MILLIGRAM DAILY;   0?0?1?0,
     Route: 048
  10. METFORMIN [Concomitant]
     Active Substance: METFORMIN HYDROCHLORIDE
     Dosage: 2000 MILLIGRAM DAILY;  1?0?1?0,
     Route: 048
  11. LATANOPROST. [Concomitant]
     Active Substance: LATANOPROST
     Dosage: 1 DOSAGE FORMS DAILY; 50 U/ML, 0?0?0?1, DROPS
     Route: 047
  12. METOPROLOL. [Concomitant]
     Active Substance: METOPROLOL
     Dosage: 95 MILLIGRAM DAILY;   0?0?1?0,
     Route: 048
  13. TILIDINE/NALOXONE [Concomitant]
     Active Substance: NALOXONE HYDROCHLORIDE\TILIDINE HYDROCHLORIDE
     Dosage: 4 DOSAGE FORMS DAILY; 4|50 MG, 2?0?2?0,
     Route: 048

REACTIONS (5)
  - Hyponatraemia [Unknown]
  - Product administration error [Unknown]
  - Product monitoring error [Unknown]
  - Musculoskeletal pain [Unknown]
  - Labelled drug-drug interaction medication error [Unknown]
